FAERS Safety Report 9720634 (Version 3)
Quarter: 2014Q1

REPORT INFORMATION
  Report Type: Spontaneous
  Country: BG (occurrence: BG)
  Receive Date: 20131129
  Receipt Date: 20140116
  Transmission Date: 20141002
  Serious: Yes (Hospitalization, Other)
  Sender: FDA-Public Use
  Company Number: PHHY2013BG137825

PATIENT
  Age: 56 Year
  Sex: Male
  Weight: 75 kg

DRUGS (1)
  1. TASIGNA [Suspect]
     Indication: CHRONIC MYELOID LEUKAEMIA
     Dosage: 300 MG, BID
     Route: 048
     Dates: start: 201104

REACTIONS (5)
  - Prostate cancer [Recovering/Resolving]
  - Second primary malignancy [Recovering/Resolving]
  - Osteolysis [Unknown]
  - Myocardial infarction [Unknown]
  - Back pain [Unknown]
